FAERS Safety Report 12636759 (Version 2)
Quarter: 2017Q1

REPORT INFORMATION
  Report Type: Spontaneous
  Country: JP (occurrence: JP)
  Receive Date: 20160809
  Receipt Date: 20170103
  Transmission Date: 20170428
  Serious: Yes (Death, Hospitalization, Other)
  Sender: FDA-Public Use
  Company Number: JP-ORION CORPORATION ORION PHARMA-ENT 2016-0107

PATIENT
  Age: 68 Year
  Sex: Male

DRUGS (7)
  1. EQUA [Suspect]
     Active Substance: VILDAGLIPTIN
     Indication: DIABETES MELLITUS
     Route: 048
  2. EXCEGRAN [Concomitant]
     Active Substance: ZONISAMIDE
     Route: 065
  3. COMTAN [Suspect]
     Active Substance: ENTACAPONE
     Indication: PARKINSON^S DISEASE
     Route: 048
  4. STALEVO [Suspect]
     Active Substance: CARBIDOPA\ENTACAPONE\LEVODOPA
     Indication: PARKINSON^S DISEASE
     Dosage: STRENGTH: 100/10/100 MG, BEFORE BEDTIME
     Route: 048
     Dates: start: 20150929
  5. TOFRANIL [Concomitant]
     Active Substance: IMIPRAMINE HYDROCHLORIDE
     Route: 065
  6. MADOPAR [Concomitant]
     Active Substance: BENSERAZIDE HYDROCHLORIDE\LEVODOPA
     Route: 065
  7. NEUPRO [Concomitant]
     Active Substance: ROTIGOTINE
     Route: 065

REACTIONS (2)
  - Pneumonia [Fatal]
  - Wrong technique in product usage process [Unknown]
